FAERS Safety Report 25019936 (Version 1)
Quarter: 2025Q1

REPORT INFORMATION
  Report Type: Report from Study
  Country: CA (occurrence: CA)
  Receive Date: 20250227
  Receipt Date: 20250227
  Transmission Date: 20250408
  Serious: Yes (Other)
  Sender: UCB
  Company Number: CA-UCBSA-2025011165

PATIENT
  Age: 61 Year
  Sex: Male

DRUGS (1)
  1. BIMEKIZUMAB [Suspect]
     Active Substance: BIMEKIZUMAB
     Indication: Psoriatic arthropathy
     Dosage: 160 MILLIGRAM, EV 4 WEEKS
     Route: 058
     Dates: start: 20241202

REACTIONS (7)
  - Psoriatic arthropathy [Unknown]
  - Erythema [Unknown]
  - Headache [Recovered/Resolved]
  - Dysphagia [Unknown]
  - Throat tightness [Unknown]
  - Gastrooesophageal reflux disease [Unknown]
  - Hypersensitivity [Unknown]

NARRATIVE: CASE EVENT DATE: 20241201
